FAERS Safety Report 5102179-5 (Version None)
Quarter: 2006Q3

REPORT INFORMATION
  Report Type: 
  Country: None (occurrence: None)
  Receive Date: 20060912
  Receipt Date: 20060901
  Transmission Date: 20061208
  Serious: Yes (Other)
  Sender: FDA-Public Use
  Company Number: PHEH2006US11308

PATIENT
  Age: 59 Year
  Sex: Female

DRUGS (2)
  1. ZELNORM [Suspect]
     Indication: IRRITABLE BOWEL SYNDROME
     Dosage: 6 MG, BID
     Route: 048
     Dates: start: 20060801
  2. ZELNORM [Suspect]
     Dosage: 6 MG, BID
     Route: 048
     Dates: start: 20060801, end: 20060801

REACTIONS (2)
  - DIARRHOEA [None]
  - DIZZINESS [None]
